FAERS Safety Report 21129356 (Version 1)
Quarter: 2022Q3

REPORT INFORMATION
  Report Type: Spontaneous
  Country: US (occurrence: US)
  Receive Date: 20220725
  Receipt Date: 20220725
  Transmission Date: 20221027
  Serious: Yes (Death, Disabling, Other)
  Sender: FDA-Public Use
  Company Number: US-GILEAD-2022-0590212

PATIENT
  Age: 87 Year
  Sex: Male
  Weight: 93.424 kg

DRUGS (6)
  1. ZYDELIG [Suspect]
     Active Substance: IDELALISIB
     Indication: Product used for unknown indication
     Dosage: 300 MG
     Route: 048
     Dates: start: 201601, end: 20160123
  2. IMBRUVICA [Suspect]
     Active Substance: IBRUTINIB
     Indication: Lymphocytic lymphoma
     Dosage: 140 MG, QID
     Route: 048
     Dates: start: 20160123, end: 201601
  3. IMBRUVICA [Suspect]
     Active Substance: IBRUTINIB
     Dosage: 560 MG
     Route: 048
     Dates: start: 20160128, end: 20160129
  4. IMBRUVICA [Suspect]
     Active Substance: IBRUTINIB
     Dosage: 280 MG
     Route: 048
     Dates: start: 20160225, end: 20160310
  5. PRIMIDONE [Concomitant]
     Active Substance: PRIMIDONE
     Dosage: UNK
     Dates: start: 20160625
  6. IMIPRAMINE HYDROCHLORIDE [Concomitant]
     Active Substance: IMIPRAMINE HYDROCHLORIDE

REACTIONS (29)
  - Chronic lymphocytic leukaemia [Fatal]
  - Fatigue [Unknown]
  - B-cell small lymphocytic lymphoma [Unknown]
  - Non-Hodgkin^s lymphoma [Unknown]
  - Diffuse large B-cell lymphoma [Unknown]
  - Chronic kidney disease [Unknown]
  - Hypothyroidism [Unknown]
  - Thrombocytopenia [Unknown]
  - Pneumonia [Unknown]
  - Renal cyst [Unknown]
  - Urinary incontinence [Unknown]
  - Cerumen impaction [Unknown]
  - Hyperglycaemia [Unknown]
  - Periodontal disease [Unknown]
  - Hypoacusis [Unknown]
  - Hyperlipidaemia [Unknown]
  - Vitamin D deficiency [Unknown]
  - Sinus bradycardia [Unknown]
  - Cervical radiculopathy [Unknown]
  - Lumbar spinal stenosis [Unknown]
  - Sputum abnormal [Unknown]
  - Dysuria [Unknown]
  - Tremor [Unknown]
  - Gingival disorder [Unknown]
  - Infected dermal cyst [Unknown]
  - Hypertension [Unknown]
  - Arthralgia [Unknown]
  - Upper respiratory tract infection [Unknown]
  - Viral infection [Unknown]

NARRATIVE: CASE EVENT DATE: 20160101
